FAERS Safety Report 6239149-X (Version None)
Quarter: 2009Q2

REPORT INFORMATION
  Report Type: 
  Country: None (occurrence: None)
  Receive Date: 20090622
  Receipt Date: 20090617
  Transmission Date: 20091009
  Serious: Yes (Death, Other)
  Sender: FDA-Public Use
  Company Number: TH-CELGENEUS-153-20785-09061397

PATIENT
  Age: 23 Year
  Sex: Female

DRUGS (2)
  1. THALIDOMIDE [Suspect]
     Route: 048
  2. PACLITAXEL [Concomitant]
     Route: 065

REACTIONS (2)
  - ASPHYXIA [None]
  - SKIN TOXICITY [None]
